FAERS Safety Report 11205350 (Version 1)
Quarter: 2015Q2

REPORT INFORMATION
  Report Type: Spontaneous
  Country: US (occurrence: US)
  Receive Date: 20150622
  Receipt Date: 20150622
  Transmission Date: 20150821
  Serious: No
  Sender: FDA-Public Use
  Company Number: US-GLAXOSMITHKLINE-US2015GSK082668

PATIENT
  Sex: Male

DRUGS (1)
  1. IMITREX [Suspect]
     Active Substance: SUMATRIPTAN\SUMATRIPTAN SUCCINATE
     Indication: CLUSTER HEADACHE
     Dosage: UNK, U
     Route: 042

REACTIONS (1)
  - Device use error [Unknown]
